FAERS Safety Report 4434694-1 (Version None)
Quarter: 2004Q3

REPORT INFORMATION
  Report Type: 
  Country: None (occurrence: None)
  Receive Date: 20040730
  Receipt Date: 20031014
  Transmission Date: 20050211
  Serious: Yes (Hospitalization, Other)
  Sender: FDA-Public Use
  Company Number: 2003-10-1294

PATIENT
  Age: 30 Year
  Sex: Male
  Weight: 80.7403 kg

DRUGS (4)
  1. REBETOL [Suspect]
     Indication: HEPATITIS C
     Dosage: 1000 MG QD ORAL
     Route: 048
     Dates: start: 20021217, end: 20031010
  2. PEGASYS [Suspect]
     Indication: HEPATITIS C
     Dosage: SUBCUTANEOUS
     Route: 058
     Dates: start: 20021217, end: 20031010
  3. ANTIDEPRESSANTS (NOS) [Concomitant]
  4. NUTRITIONAL SUPPLEMENTS FOR SUPPLEMENTATION (NONIE JUICE) [Concomitant]

REACTIONS (2)
  - COUGH [None]
  - PNEUMONIA [None]
